FAERS Safety Report 16849279 (Version 1)
Quarter: 2019Q3

REPORT INFORMATION
  Report Type: Spontaneous
  Country: US (occurrence: US)
  Receive Date: 20190802
  Receipt Date: 20190802
  Transmission Date: 20191005
  Serious: Yes (Other)
  Sender: FDA-Public Use
  Company Number: None

PATIENT
  Age: 63 Year
  Sex: Female

DRUGS (21)
  1. AMLODIPINE [Concomitant]
     Active Substance: AMLODIPINE BESYLATE
  2. BIOTIN [Concomitant]
     Active Substance: BIOTIN
  3. OPSUMIT [Suspect]
     Active Substance: MACITENTAN
     Indication: PULMONARY HYPERTENSION
     Route: 048
     Dates: start: 201810, end: 201907
  4. GABAPENTIN. [Concomitant]
     Active Substance: GABAPENTIN
  5. COSOPT OPHT DROP [Concomitant]
  6. TRIAMCINOLONE TOP CREAM [Concomitant]
  7. HUMALOG [Concomitant]
     Active Substance: INSULIN LISPRO
  8. INSULIN GLARGINE [Concomitant]
     Active Substance: INSULIN GLARGINE
  9. LORAZEP [Concomitant]
     Active Substance: LORAZEPAM
  10. FUROSEMIDE. [Concomitant]
     Active Substance: FUROSEMIDE
  11. ASPIRIN. [Concomitant]
     Active Substance: ASPIRIN
  12. CRANBERRY CONCENTRATE [Concomitant]
     Active Substance: CRANBERRY CONCENTRATE
  13. XALATAN [Concomitant]
     Active Substance: LATANOPROST
  14. ATORVASTATIN [Concomitant]
     Active Substance: ATORVASTATIN
  15. SILDENAFIL. [Concomitant]
     Active Substance: SILDENAFIL
  16. METHAZOLAMIDE. [Concomitant]
     Active Substance: METHAZOLAMIDE
  17. LABETALOL [Concomitant]
     Active Substance: LABETALOL\LABETALOL HYDROCHLORIDE
  18. VITAMIN D3 [Concomitant]
     Active Substance: CHOLECALCIFEROL
  19. PRED FORTE OPHT DROP [Concomitant]
  20. PANTOPRAZOLE [Concomitant]
     Active Substance: PANTOPRAZOLE
  21. ALPHAGAN P [Concomitant]
     Active Substance: BRIMONIDINE TARTRATE

REACTIONS (1)
  - Therapy non-responder [None]

NARRATIVE: CASE EVENT DATE: 20190708
